FAERS Safety Report 22021490 (Version 1)
Quarter: 2023Q1

REPORT INFORMATION
  Report Type: Spontaneous
  Country: US (occurrence: None)
  Receive Date: 20230219
  Receipt Date: 20230219
  Transmission Date: 20230418
  Serious: Yes (Death)
  Sender: FDA-Public Use
  Company Number: None

PATIENT
  Age: 75 Year
  Sex: Female
  Weight: 61.23 kg

DRUGS (14)
  1. IBRANCE [Suspect]
     Active Substance: PALBOCICLIB
     Indication: Breast cancer female
     Dosage: FREQUENCY : DAILY;?OTHER ROUTE : ORAL 21DAYS ON 7D OFF;?
     Route: 050
     Dates: start: 201809
  2. AMLODIPINE [Concomitant]
     Active Substance: AMLODIPINE BESYLATE
  3. ASPIRIN [Concomitant]
     Active Substance: ASPIRIN
  4. CLOPIDOGREL [Concomitant]
     Active Substance: CLOPIDOGREL BISULFATE
  5. CYANOCBALAMIN [Concomitant]
  6. ELIQUIS [Concomitant]
     Active Substance: APIXABAN
  7. FERROUS SULFATE [Concomitant]
     Active Substance: FERROUS SULFATE
  8. HUMALOG [Concomitant]
     Active Substance: INSULIN LISPRO
  9. LETROZOLE [Concomitant]
     Active Substance: LETROZOLE
  10. LISINOPRIL [Concomitant]
     Active Substance: LISINOPRIL
  11. MAGNESIUM [Concomitant]
     Active Substance: MAGNESIUM
  12. METOPROLOL [Concomitant]
     Active Substance: METOPROLOL
  13. POTASSIUM [Concomitant]
     Active Substance: POTASSIUM
  14. PROLIA [Concomitant]
     Active Substance: DENOSUMAB

REACTIONS (1)
  - Death [None]

NARRATIVE: CASE EVENT DATE: 20230210
